FAERS Safety Report 9220890 (Version 1)
Quarter: 2013Q2

REPORT INFORMATION
  Report Type: Spontaneous
  Country: US (occurrence: US)
  Receive Date: 20130409
  Receipt Date: 20130409
  Transmission Date: 20140414
  Serious: Yes (Hospitalization)
  Sender: FDA-Public Use
  Company Number: US-TEVA-396950USA

PATIENT
  Sex: Female

DRUGS (3)
  1. CIPROFLOXACIN [Suspect]
     Dates: start: 20130125
  2. PREDNISONE [Concomitant]
     Dosage: ON FOR YEARS
  3. INHALERS [Concomitant]

REACTIONS (8)
  - Muscle spasms [Recovered/Resolved]
  - Local swelling [Unknown]
  - Erythema [Unknown]
  - Hypoaesthesia oral [Not Recovered/Not Resolved]
  - Paraesthesia oral [Not Recovered/Not Resolved]
  - Gait disturbance [Unknown]
  - Paraesthesia [Not Recovered/Not Resolved]
  - Muscular weakness [Unknown]
